FAERS Safety Report 4381360-7 (Version None)
Quarter: 2004Q2

REPORT INFORMATION
  Report Type: 
  Country: None (occurrence: None)
  Receive Date: 20040616
  Receipt Date: 20040526
  Transmission Date: 20050107
  Serious: Yes (Hospitalization)
  Sender: FDA-Public Use
  Company Number: PHEH2004US01666

PATIENT
  Age: 85 Year
  Sex: Male

DRUGS (7)
  1. VISUDYNE [Suspect]
     Indication: MACULAR DEGENERATION
     Dosage: 2 MG/ML ONCE IV
     Route: 042
     Dates: start: 20040206, end: 20040206
  2. VISUDYNE [Suspect]
     Indication: MACULAR DEGENERATION
     Dates: start: 20040423, end: 20040423
  3. ADALAT [Suspect]
  4. PREVACID [Suspect]
  5. EYE DROPS [Concomitant]
  6. PROSCAR [Concomitant]
  7. CAPTOPRIL [Concomitant]

REACTIONS (4)
  - BACK PAIN [None]
  - HAEMORRHAGIC STROKE [None]
  - INFUSION RELATED REACTION [None]
  - VEIN DISORDER [None]
